FAERS Safety Report 11469242 (Version 1)
Quarter: 2015Q3

REPORT INFORMATION
  Report Type: Spontaneous
  Country: GB (occurrence: GB)
  Receive Date: 20150908
  Receipt Date: 20150908
  Transmission Date: 20151125
  Serious: Yes (Other)
  Sender: FDA-Public Use
  Company Number: GB-009507513-1509GBR003788

PATIENT
  Age: 9 Year
  Sex: Male
  Weight: 25 kg

DRUGS (3)
  1. FENBID [Concomitant]
     Active Substance: IBUPROFEN
  2. MONTELUKAST SODIUM. [Concomitant]
     Active Substance: MONTELUKAST SODIUM
     Indication: RHINITIS
     Dosage: 5 MG, UNK
     Route: 048
  3. NASONEX [Suspect]
     Active Substance: MOMETASONE FUROATE
     Route: 045

REACTIONS (2)
  - Eye discharge [Unknown]
  - Wheezing [Recovered/Resolved]
